FAERS Safety Report 9696932 (Version 2)
Quarter: 2013Q4

REPORT INFORMATION
  Report Type: Spontaneous
  Country: US (occurrence: US)
  Receive Date: 20131119
  Receipt Date: 20131119
  Transmission Date: 20140711
  Serious: Yes (Hospitalization)
  Sender: FDA-Public Use
  Company Number: US-LUNDBECK-DKLU1088825

PATIENT
  Age: 33 Year
  Sex: Female
  Weight: 54 kg

DRUGS (18)
  1. SABRIL (TABLET) [Suspect]
     Indication: EPILEPSY
     Dates: start: 20130102
  2. SABRIL (TABLET) [Suspect]
     Indication: COMPLEX PARTIAL SEIZURES
     Dates: start: 20130102
  3. SABRIL (TABLET) [Suspect]
     Indication: EPILEPSY
     Route: 048
  4. SABRIL (TABLET) [Suspect]
     Route: 048
     Dates: start: 20130126
  5. SABRIL (TABLET) [Suspect]
  6. ONFI [Concomitant]
     Indication: PRODUCT USED FOR UNKNOWN INDICATION
  7. FELBATOL [Concomitant]
     Indication: PRODUCT USED FOR UNKNOWN INDICATION
     Route: 048
  8. FELBATOL [Concomitant]
     Route: 048
  9. FELBATOL [Concomitant]
     Route: 048
  10. FELBATOL [Concomitant]
  11. LAMICTAL [Concomitant]
     Indication: PRODUCT USED FOR UNKNOWN INDICATION
     Route: 048
  12. DEPAKENE [Concomitant]
     Indication: PRODUCT USED FOR UNKNOWN INDICATION
     Route: 048
  13. DEPAKENE [Concomitant]
     Route: 048
  14. POTIGA [Concomitant]
     Indication: PRODUCT USED FOR UNKNOWN INDICATION
     Route: 048
  15. BANZEL [Concomitant]
     Indication: PRODUCT USED FOR UNKNOWN INDICATION
     Route: 048
  16. BANZEL [Concomitant]
     Route: 048
  17. PRILOSEC [Concomitant]
     Indication: PRODUCT USED FOR UNKNOWN INDICATION
     Route: 048
  18. CARAFATE [Concomitant]
     Indication: PRODUCT USED FOR UNKNOWN INDICATION

REACTIONS (17)
  - Renal disorder [Unknown]
  - Hepatic infection [Unknown]
  - Septic shock [Recovering/Resolving]
  - Renal failure acute [Recovering/Resolving]
  - Pneumonitis [Unknown]
  - Acute respiratory failure [Recovered/Resolved]
  - Hydronephrosis [Recovering/Resolving]
  - Infection [Unknown]
  - Iron deficiency anaemia [Recovered/Resolved]
  - Dehydration [Recovered/Resolved]
  - Mental status changes [Recovering/Resolving]
  - Retroperitoneal oedema [Unknown]
  - Lobar pneumonia [Recovering/Resolving]
  - Urinary tract infection [Recovered/Resolved]
  - Encephalopathy [Recovering/Resolving]
  - Constipation [Recovered/Resolved]
  - Convulsion [Unknown]
